FAERS Safety Report 6106011-2 (Version None)
Quarter: 2009Q1

REPORT INFORMATION
  Report Type: 
  Country: None (occurrence: None)
  Receive Date: 20090306
  Receipt Date: 20090306
  Transmission Date: 20090719
  Serious: No
  Sender: FDA-Public Use
  Company Number: None

PATIENT
  Sex: Male
  Weight: 112.9457 kg

DRUGS (1)
  1. DIOVAN HCT [Suspect]
     Indication: HYPERTENSION
     Dosage: 160/25MG 1 ONCE DAILY SECOND TIME 8/5/08 - LATER IN 2008
     Dates: start: 20080805, end: 20080101

REACTIONS (1)
  - RHINORRHOEA [None]
